FAERS Safety Report 23767726 (Version 5)
Quarter: 2025Q3

REPORT INFORMATION
  Report Type: Other
  Country: CA (occurrence: CA)
  Receive Date: 20240422
  Receipt Date: 20250918
  Transmission Date: 20251021
  Serious: Yes (Hospitalization, Other)
  Sender: APOTEX
  Company Number: CA-APOTEX-2024AP004720

PATIENT
  Age: 76 Year
  Sex: Male
  Weight: 105 kg

DRUGS (35)
  1. CITALOPRAM [Suspect]
     Active Substance: CITALOPRAM
     Indication: Product used for unknown indication
     Dosage: 1 EVERY 1 DAYS
     Route: 062
  2. OLANZAPINE [Suspect]
     Active Substance: OLANZAPINE
     Indication: Social (pragmatic) communication disorder
     Dosage: 2.5 MILLIGRAM, QD
     Route: 048
  3. OLANZAPINE [Suspect]
     Active Substance: OLANZAPINE
     Indication: Post-traumatic stress disorder
     Route: 065
  4. OLANZAPINE [Suspect]
     Active Substance: OLANZAPINE
     Indication: Agitation
  5. OLANZAPINE [Suspect]
     Active Substance: OLANZAPINE
     Indication: Injury
  6. QUETIAPINE [Suspect]
     Active Substance: QUETIAPINE
     Indication: Hallucination, visual
     Dosage: 100 MILLIGRAM, QD
     Route: 065
  7. QUETIAPINE [Suspect]
     Active Substance: QUETIAPINE
     Indication: Dementia with Lewy bodies
     Dosage: 12.5 MILLIGRAM, QD
     Route: 065
  8. QUETIAPINE [Suspect]
     Active Substance: QUETIAPINE
     Indication: Accommodation disorder
     Dosage: 25 MILLIGRAM, BID
     Route: 065
  9. QUETIAPINE [Suspect]
     Active Substance: QUETIAPINE
     Dosage: 12.5 MILLIGRAM, TID (EVERY 8 HOURS)
     Route: 065
  10. QUETIAPINE [Suspect]
     Active Substance: QUETIAPINE
     Dosage: 50 MILLIGRAM, QD
     Route: 065
  11. QUETIAPINE [Suspect]
     Active Substance: QUETIAPINE
     Route: 065
  12. QUETIAPINE [Suspect]
     Active Substance: QUETIAPINE
     Route: 065
  13. QUETIAPINE [Suspect]
     Active Substance: QUETIAPINE
     Route: 065
  14. CLONAZEPAM [Suspect]
     Active Substance: CLONAZEPAM
     Indication: Product used for unknown indication
     Dosage: 0.5 MILLIGRAM, QD
     Route: 065
  15. CLONAZEPAM [Suspect]
     Active Substance: CLONAZEPAM
     Indication: Dementia with Lewy bodies
  16. RISPERIDONE [Suspect]
     Active Substance: RISPERIDONE
     Indication: Post-traumatic stress disorder
     Dosage: 0.25 MILLIGRAM, BID
     Route: 048
  17. RISPERIDONE [Suspect]
     Active Substance: RISPERIDONE
     Indication: Injury
  18. RIVASTIGMINE [Suspect]
     Active Substance: RIVASTIGMINE
     Indication: Product used for unknown indication
     Dosage: 1.5 MILLIGRAM, QD
     Route: 065
  19. RIVASTIGMINE [Suspect]
     Active Substance: RIVASTIGMINE
     Route: 065
  20. RIVASTIGMINE [Suspect]
     Active Substance: RIVASTIGMINE
     Dosage: 1.5 MILLIGRAM, BID
     Route: 065
  21. RIVASTIGMINE [Suspect]
     Active Substance: RIVASTIGMINE
     Route: 062
  22. TRAZODONE [Suspect]
     Active Substance: TRAZODONE HYDROCHLORIDE
     Indication: Product used for unknown indication
     Dosage: 50 MILLIGRAM, QD
     Route: 065
  23. TRAZODONE [Suspect]
     Active Substance: TRAZODONE HYDROCHLORIDE
     Dosage: 25 MILLIGRAM, QD
     Route: 065
  24. TRAZODONE [Suspect]
     Active Substance: TRAZODONE HYDROCHLORIDE
     Dosage: 100 MILLIGRAM, QD
     Route: 065
  25. TRAZODONE [Suspect]
     Active Substance: TRAZODONE HYDROCHLORIDE
     Dosage: 50 MILLIGRAM, TID
     Route: 065
  26. CANDESARTAN [Suspect]
     Active Substance: CANDESARTAN
     Indication: Product used for unknown indication
     Route: 065
  27. CLOZAPINE [Suspect]
     Active Substance: CLOZAPINE
     Indication: Dementia with Lewy bodies
     Dosage: 6.25 MILLIGRAM, QD
     Route: 065
  28. CLOZAPINE [Suspect]
     Active Substance: CLOZAPINE
     Indication: Neuropsychological symptoms
     Dosage: 50 MILLIGRAM, QD
     Route: 065
  29. CLOZAPINE [Suspect]
     Active Substance: CLOZAPINE
     Indication: Parkinson^s disease
  30. LORAZEPAM [Suspect]
     Active Substance: LORAZEPAM
     Indication: Parkinson^s disease
     Route: 065
  31. LORAZEPAM [Suspect]
     Active Substance: LORAZEPAM
     Indication: Product used for unknown indication
  32. LORAZEPAM [Suspect]
     Active Substance: LORAZEPAM
     Indication: Dementia with Lewy bodies
  33. LOXAPINE [Suspect]
     Active Substance: LOXAPINE
     Indication: Parkinson^s disease
     Route: 065
  34. LOXAPINE [Suspect]
     Active Substance: LOXAPINE
     Indication: Product used for unknown indication
  35. LOXAPINE [Suspect]
     Active Substance: LOXAPINE
     Indication: Dementia with Lewy bodies

REACTIONS (5)
  - Parkinsonism [Unknown]
  - Off label use [Unknown]
  - Sedation [Unknown]
  - Fall [Unknown]
  - Orthostatic hypotension [Unknown]
